FAERS Safety Report 8187746-7 (Version None)
Quarter: 2012Q1

REPORT INFORMATION
  Report Type: 
  Country: None (occurrence: None)
  Receive Date: 20120306
  Receipt Date: 20120305
  Transmission Date: 20120608
  Serious: Yes (Other)
  Sender: FDA-Public Use
  Company Number: US-PFIZER INC-2012042627

PATIENT
  Sex: Male

DRUGS (8)
  1. VICODIN [Suspect]
     Dosage: UNK
  2. LIDOCAINE [Concomitant]
     Dosage: UNK
  3. NEURONTIN [Suspect]
     Indication: HERPES ZOSTER
     Dosage: 100MG ORAL CAPSULE ONE IN MORNING, ONE IN THE AFTERNOON AND TWO 300MG ORAL CAPSULE AT NIGHT
     Route: 048
     Dates: start: 20100101
  4. ENALAPRIL [Concomitant]
     Indication: HYPERTENSION
     Dosage: UNK
  5. NEURONTIN [Suspect]
     Indication: PAIN
  6. LORTAB [Suspect]
     Dosage: UNK
  7. VASOTEC [Concomitant]
     Indication: HYPERTENSION
     Dosage: UNK
  8. SIMVASTATIN [Concomitant]
     Indication: BLOOD CHOLESTEROL DECREASED
     Dosage: UNK

REACTIONS (4)
  - HERPES ZOSTER [None]
  - DIZZINESS [None]
  - THYROID CANCER [None]
  - PAIN [None]
